FAERS Safety Report 5723652-2 (Version None)
Quarter: 2008Q2

REPORT INFORMATION
  Report Type: 
  Country: None (occurrence: None)
  Receive Date: 20080430
  Receipt Date: 20080423
  Transmission Date: 20081010
  Serious: Yes (Hospitalization)
  Sender: FDA-Public Use
  Company Number: US-GENENTECH-256572

PATIENT
  Sex: Female
  Weight: 99.79 kg

DRUGS (1)
  1. OMALIZUMAB [Suspect]
     Indication: ASTHMA
     Dosage: UNK, Q2W
     Dates: start: 20070226

REACTIONS (1)
  - ASTHMA [None]
